FAERS Safety Report 7003657-4 (Version None)
Quarter: 2010Q3

REPORT INFORMATION
  Report Type: 
  Country: None (occurrence: None)
  Receive Date: 20100917
  Receipt Date: 20100909
  Transmission Date: 20110219
  Serious: Yes (Hospitalization)
  Sender: FDA-Public Use
  Company Number: DSU-2010-04691

PATIENT
  Age: 65 Year
  Sex: Female

DRUGS (1)
  1. WELCHOL [Suspect]
     Indication: HYPERLIPIDAEMIA
     Dosage: ,PER ORAL
     Route: 048
     Dates: start: 20100801, end: 20100101

REACTIONS (1)
  - INTESTINAL OBSTRUCTION [None]
